FAERS Safety Report 6176474-5 (Version None)
Quarter: 2009Q2

REPORT INFORMATION
  Report Type: 
  Country: None (occurrence: None)
  Receive Date: 20090501
  Receipt Date: 20090312
  Transmission Date: 20091009
  Serious: Yes (Other)
  Sender: FDA-Public Use
  Company Number: PHHY2009DE06225

PATIENT
  Sex: Female

DRUGS (10)
  1. TASIGNA [Suspect]
     Indication: CHRONIC MYELOID LEUKAEMIA
     Dosage: 800 MG, QD
     Route: 048
     Dates: start: 20081010
  2. AMANTADINE HCL [Concomitant]
     Dosage: 100 MG
  3. SPASMOLYT [Concomitant]
  4. OPIPRAMOL [Concomitant]
  5. PREDNISOLONE [Concomitant]
  6. LEVOFLOXACIN [Concomitant]
  7. REQUIP [Concomitant]
     Dosage: UNK
  8. BISOPROLOL FUMARATE [Concomitant]
     Dosage: UNK
  9. ACETYLSALICYLIC ACID [Concomitant]
  10. PANTOZOL [Concomitant]

REACTIONS (8)
  - ALOPECIA [None]
  - ERYTHEMA [None]
  - HAIR DISORDER [None]
  - INFLAMMATION [None]
  - PRURITUS [None]
  - RASH PUSTULAR [None]
  - SCLERODERMA [None]
  - SKIN DISORDER [None]
